FAERS Safety Report 7931446-2 (Version None)
Quarter: 2011Q4

REPORT INFORMATION
  Report Type: 
  Country: None (occurrence: None)
  Receive Date: 20111121
  Receipt Date: 20111112
  Transmission Date: 20120403
  Serious: Yes (Hospitalization)
  Sender: FDA-Public Use
  Company Number: FR-US-EMD SERONO, INC.-7095476

PATIENT
  Age: 4 Year
  Sex: Male
  Weight: 10 kg

DRUGS (1)
  1. SAIZEN [Suspect]
     Indication: SMALL FOR DATES BABY
     Route: 058

REACTIONS (4)
  - WEIGHT DECREASED [None]
  - VOMITING [None]
  - DIARRHOEA INFECTIOUS [None]
  - PYREXIA [None]
